FAERS Safety Report 24844709 (Version 1)
Quarter: 2025Q1

REPORT INFORMATION
  Report Type: Other
  Country: US (occurrence: US)
  Receive Date: 20250115
  Receipt Date: 20250115
  Transmission Date: 20250409
  Serious: No
  Sender: TRAVERE THERAPEUTICS
  Company Number: US-TRAVERE-2024TVT01267

PATIENT
  Age: 36 Year
  Sex: Male

DRUGS (2)
  1. FILSPARI [Suspect]
     Active Substance: SPARSENTAN
     Indication: IgA nephropathy
     Route: 048
     Dates: start: 20241121, end: 20241202
  2. FILSPARI [Suspect]
     Active Substance: SPARSENTAN
     Route: 048
     Dates: start: 20241207, end: 20241207

REACTIONS (4)
  - Headache [Unknown]
  - Nausea [Unknown]
  - Testicular pain [Unknown]
  - Abdominal distension [None]

NARRATIVE: CASE EVENT DATE: 20241201
